FAERS Safety Report 11698348 (Version 1)
Quarter: 2015Q4

REPORT INFORMATION
  Report Type: Spontaneous
  Country: FR (occurrence: FR)
  Receive Date: 20151104
  Receipt Date: 20151104
  Transmission Date: 20160304
  Serious: Yes (Hospitalization)
  Sender: FDA-Public Use
  Company Number: FR-ASTRAZENECA-2015SF04821

PATIENT
  Age: 25373 Day
  Sex: Male

DRUGS (13)
  1. TRAMADOL. [Suspect]
     Active Substance: TRAMADOL
     Route: 048
     Dates: end: 20151004
  2. LORMETAZEPAM [Suspect]
     Active Substance: LORMETAZEPAM
     Route: 048
     Dates: end: 20151004
  3. RIOPAN [Suspect]
     Active Substance: MAGALDRATE
     Route: 048
     Dates: end: 20151004
  4. NAPROXEN. [Suspect]
     Active Substance: NAPROXEN
     Indication: INFLAMMATION
     Route: 048
     Dates: start: 201510, end: 20151004
  5. BECOZYME (MAGNESIUM CARBONATE\POTASSIUM IODIDE\SILICIC ACID\VITAMINS NOS) [Suspect]
     Active Substance: MINERALS\VITAMINS
     Route: 048
     Dates: end: 20151004
  6. PARACETAMOL [Concomitant]
     Active Substance: ACETAMINOPHEN
  7. XARELTO [Suspect]
     Active Substance: RIVAROXABAN
     Indication: ATRIAL FIBRILLATION
     Route: 048
     Dates: start: 201306, end: 20151004
  8. PANTOPRAZOLE [Concomitant]
     Active Substance: PANTOPRAZOLE SODIUM
  9. MEDROL [Suspect]
     Active Substance: METHYLPREDNISOLONE
     Indication: INFLAMMATION
     Dosage: 24 MG AND THEN 16 MG EVERY DAY
     Route: 048
     Dates: start: 201509
  10. SYMBICORT [Suspect]
     Active Substance: BUDESONIDE\FORMOTEROL FUMARATE DIHYDRATE
     Route: 055
     Dates: end: 20151004
  11. LEVOTHYROX [Concomitant]
     Active Substance: LEVOTHYROXINE
  12. TILDIEM [Suspect]
     Active Substance: DILTIAZEM HYDROCHLORIDE
     Route: 048
     Dates: end: 20151004
  13. CORDARONE [Concomitant]
     Active Substance: AMIODARONE HYDROCHLORIDE

REACTIONS (2)
  - Anaemia [Recovering/Resolving]
  - Haematemesis [Recovered/Resolved]

NARRATIVE: CASE EVENT DATE: 20151004
